FAERS Safety Report 9835037 (Version 2)
Quarter: 2014Q1

REPORT INFORMATION
  Report Type: Spontaneous
  Country: US (occurrence: US)
  Receive Date: 20140122
  Receipt Date: 20140310
  Transmission Date: 20141002
  Serious: Yes (Death, Hospitalization)
  Sender: FDA-Public Use
  Company Number: US-B.I. PHARMACEUTICALS,INC./RIDGEFIELD-2014-BI-02698BP

PATIENT
  Age: 69 Year
  Sex: Female
  Weight: 90.72 kg

DRUGS (13)
  1. PRADAXA [Suspect]
     Indication: ATRIAL FIBRILLATION
     Dosage: 300 MG
     Route: 065
     Dates: start: 20110620, end: 20130322
  2. TRAMADOL [Concomitant]
     Route: 065
     Dates: end: 201303
  3. SOTALOL [Concomitant]
     Route: 065
     Dates: end: 201303
  4. SIMVASTATIN [Concomitant]
     Route: 065
     Dates: end: 201303
  5. PROBENECID [Concomitant]
     Route: 065
  6. LOVAZA [Concomitant]
     Route: 065
  7. FUROSEMIDE [Concomitant]
     Route: 065
  8. FOLIC ACID [Concomitant]
     Route: 065
  9. DILTIAZEM [Concomitant]
     Route: 065
     Dates: end: 201303
  10. ATACAND [Concomitant]
     Route: 065
     Dates: end: 201303
  11. HYDROCODONE [Concomitant]
     Route: 065
  12. ACETAMINOPHEN [Concomitant]
     Route: 065
  13. AMOXICILLIN [Concomitant]
     Route: 065

REACTIONS (4)
  - Upper gastrointestinal haemorrhage [Fatal]
  - Shock haemorrhagic [Unknown]
  - Cardiac arrest [Unknown]
  - Anaemia [Unknown]
